FAERS Safety Report 7630263-0 (Version None)
Quarter: 2011Q3

REPORT INFORMATION
  Report Type: 
  Country: None (occurrence: None)
  Receive Date: 20110722
  Receipt Date: 20110715
  Transmission Date: 20111222
  Serious: Yes (Other)
  Sender: FDA-Public Use
  Company Number: US-TEVA-290526USA

PATIENT
  Sex: Female
  Weight: 56.75 kg

DRUGS (5)
  1. METHOTREXATE [Concomitant]
     Indication: SYSTEMIC LUPUS ERYTHEMATOSUS
  2. ACTAGOL [Concomitant]
  3. PROAIR HFA [Suspect]
     Indication: ASTHMA
     Dosage: 90 MICROGRAM;
     Route: 055
     Dates: start: 20100701, end: 20101201
  4. PREDNISONE [Concomitant]
     Indication: PULMONARY FIBROSIS
  5. PRIMIDONE [Concomitant]

REACTIONS (2)
  - EPILEPTIC AURA [None]
  - EPILEPSY [None]
